FAERS Safety Report 21589060 (Version 1)
Quarter: 2022Q4

REPORT INFORMATION
  Report Type: Other
  Country: CN (occurrence: CN)
  Receive Date: 20221114
  Receipt Date: 20221114
  Transmission Date: 20230113
  Serious: Yes (Other)
  Sender: FDA-Public Use
  Company Number: CN-BoehringerIngelheim-2022-BI-200993

PATIENT
  Age: 32 Year
  Sex: Male

DRUGS (1)
  1. ALTEPLASE [Suspect]
     Active Substance: ALTEPLASE
     Indication: Pulmonary embolism
     Route: 042

REACTIONS (4)
  - Drug ineffective [Unknown]
  - Bradyarrhythmia [Recovered/Resolved]
  - Haemolysis [Unknown]
  - Haemoglobinuria [Unknown]
